FAERS Safety Report 24681158 (Version 2)
Quarter: 2025Q3

REPORT INFORMATION
  Report Type: Report from Study
  Country: US (occurrence: US)
  Receive Date: 20241129
  Receipt Date: 20250802
  Transmission Date: 20251020
  Serious: Yes (Other)
  Sender: ALEXION PHARMACEUTICALS
  Company Number: 202411USA021839US

PATIENT

DRUGS (1)
  1. STRENSIQ [Suspect]
     Active Substance: ASFOTASE ALFA
     Route: 065

REACTIONS (10)
  - Lip neoplasm malignant stage unspecified [Unknown]
  - Angiomyolipoma [Unknown]
  - Tachycardia [Unknown]
  - Concussion [Unknown]
  - Computerised tomogram heart abnormal [Unknown]
  - Blood creatinine increased [Unknown]
  - Glomerular filtration rate decreased [Unknown]
  - Anion gap increased [Unknown]
  - Hepatic steatosis [Unknown]
  - Bone density abnormal [Unknown]

NARRATIVE: CASE EVENT DATE: 20190101
